FAERS Safety Report 23822675 (Version 1)
Quarter: 2024Q2

REPORT INFORMATION
  Report Type: Spontaneous
  Country: US (occurrence: None)
  Receive Date: 20240506
  Receipt Date: 20240506
  Transmission Date: 20240716
  Serious: No
  Sender: FDA-Public Use
  Company Number: 2024A083264

PATIENT
  Age: 64 Year
  Sex: Female

DRUGS (2)
  1. TRUQAP [Suspect]
     Active Substance: CAPIVASERTIB
     Indication: Product used for unknown indication
     Route: 048
  2. ORSERDU [Suspect]
     Active Substance: ELACESTRANT
     Indication: Product used for unknown indication
     Route: 048
     Dates: start: 20231024

REACTIONS (1)
  - Fatigue [Unknown]
